FAERS Safety Report 10815323 (Version 2)
Quarter: 2015Q1

REPORT INFORMATION
  Report Type: Report from Study
  Country: JP (occurrence: JP)
  Receive Date: 20150218
  Receipt Date: 20150327
  Transmission Date: 20150721
  Serious: Yes (Death, Life-Threatening, Hospitalization, Other)
  Sender: FDA-Public Use
  Company Number: PHHY2015JP008257

PATIENT
  Age: 88 Year
  Sex: Female
  Weight: 35 kg

DRUGS (13)
  1. EXELON [Suspect]
     Active Substance: RIVASTIGMINE TARTRATE
     Dosage: PATCH7.5(CM2)
     Route: 062
     Dates: start: 20140303, end: 20140324
  2. EXELON [Suspect]
     Active Substance: RIVASTIGMINE TARTRATE
     Dosage: PATCH5(CM2)
     Route: 062
     Dates: start: 20140325, end: 20140415
  3. RENIVACE [Concomitant]
     Active Substance: ENALAPRIL
     Indication: HYPERTENSION
     Dosage: 5 MG, QD
     Route: 048
     Dates: end: 20140331
  4. DIART [Concomitant]
     Active Substance: AZOSEMIDE
     Indication: CARDIAC FAILURE CONGESTIVE
     Dosage: 30 MG, QD
     Route: 048
     Dates: end: 20140331
  5. EXELON [Suspect]
     Active Substance: RIVASTIGMINE TARTRATE
     Dosage: PATCH7.5(CM2)
     Route: 062
     Dates: start: 20130723, end: 20140217
  6. EXELON [Suspect]
     Active Substance: RIVASTIGMINE TARTRATE
     Dosage: PATCH 5(CM2)
     Route: 062
     Dates: start: 20130225, end: 20130324
  7. EXELON [Suspect]
     Active Substance: RIVASTIGMINE TARTRATE
     Dosage: PATCH10(CM2)
     Route: 062
     Dates: start: 20140218, end: 20140302
  8. BAYASPIRIN [Concomitant]
     Active Substance: ASPIRIN
     Indication: CEREBRAL INFARCTION
     Dosage: 100 MG, QD
     Route: 048
     Dates: end: 20140331
  9. EXELON [Suspect]
     Active Substance: RIVASTIGMINE TARTRATE
     Dosage: PATCH 2.5(CM2)
     Route: 062
  10. WARFARIN [Concomitant]
     Active Substance: WARFARIN
     Indication: CEREBRAL INFARCTION
     Dosage: 1 MG, QD
     Route: 048
     Dates: end: 20140331
  11. EXELON [Suspect]
     Active Substance: RIVASTIGMINE TARTRATE
     Indication: DEMENTIA ALZHEIMER^S TYPE
     Dosage: PATCH2.5(CM2)
     Route: 062
     Dates: start: 20130111, end: 20130224
  12. EXELON [Suspect]
     Active Substance: RIVASTIGMINE TARTRATE
     Dosage: PATCH 5(CM2)
     Route: 062
  13. NORVASC [Concomitant]
     Active Substance: AMLODIPINE BESYLATE
     Indication: HYPERTENSION
     Dosage: 2.5 MG, QD
     Route: 048
     Dates: end: 20140330

REACTIONS (10)
  - Hypophagia [Not Recovered/Not Resolved]
  - Gamma-glutamyltransferase increased [Unknown]
  - Marasmus [Fatal]
  - Acute kidney injury [Recovering/Resolving]
  - Blood lactate dehydrogenase increased [Unknown]
  - Red blood cell count decreased [Unknown]
  - Dehydration [Recovering/Resolving]
  - Tremor [Recovered/Resolved]
  - Multi-organ failure [Recovering/Resolving]
  - White blood cell count decreased [Unknown]

NARRATIVE: CASE EVENT DATE: 20140218
